FAERS Safety Report 10902761 (Version 13)
Quarter: 2016Q2

REPORT INFORMATION
  Report Type: Spontaneous
  Country: US (occurrence: US)
  Receive Date: 20150310
  Receipt Date: 20160504
  Transmission Date: 20160815
  Serious: Yes (Hospitalization, Other)
  Sender: FDA-Public Use
  Company Number: US-GLAXOSMITHKLINE-US2015GSK031022

PATIENT
  Age: 50 Year
  Sex: Male

DRUGS (7)
  1. FLOLAN [Suspect]
     Active Substance: EPOPROSTENOL SODIUM
     Dosage: 47.5 NG/KG/MIN CONTINOUSLY
     Route: 042
     Dates: start: 19991108
  2. FLOLAN [Suspect]
     Active Substance: EPOPROSTENOL SODIUM
     Indication: COR PULMONALE CHRONIC
     Dosage: 47.5 NG/KG/MIN CONTINUOUSLY
     Route: 042
     Dates: start: 19971202
  3. REVATIO [Concomitant]
     Active Substance: SILDENAFIL CITRATE
  4. FLOLAN [Suspect]
     Active Substance: EPOPROSTENOL SODIUM
     Dosage: 47.5 NG/KG/MINUTE CONTINUOUSLY
     Route: 042
  5. FLOLAN [Suspect]
     Active Substance: EPOPROSTENOL SODIUM
     Indication: PULMONARY HYPERTENSION
     Dosage: 47.5 DF, CO
     Route: 042
     Dates: start: 19990510
  6. FLOLAN [Suspect]
     Active Substance: EPOPROSTENOL SODIUM
     Dosage: 47.5 DF, CO
     Route: 042
  7. LASIX [Suspect]
     Active Substance: FUROSEMIDE
     Indication: PRODUCT USED FOR UNKNOWN INDICATION
     Dosage: UNK, U
     Route: 065

REACTIONS (12)
  - Cardiac failure [Unknown]
  - Catheter management [Not Recovered/Not Resolved]
  - Hospitalisation [Recovering/Resolving]
  - Incorrect dose administered [Recovering/Resolving]
  - Constipation [Unknown]
  - Pericardial effusion [Recovering/Resolving]
  - Disease progression [Unknown]
  - Pyrexia [Recovering/Resolving]
  - Haemoptysis [Recovering/Resolving]
  - Fluid retention [Unknown]
  - Pneumonia [Recovering/Resolving]
  - Weight decreased [Recovering/Resolving]

NARRATIVE: CASE EVENT DATE: 201601
